FAERS Safety Report 13143074 (Version 4)
Quarter: 2017Q2

REPORT INFORMATION
  Report Type: Spontaneous
  Country: US (occurrence: US)
  Receive Date: 20170124
  Receipt Date: 20170601
  Transmission Date: 20170830
  Serious: Yes (Other)
  Sender: FDA-Public Use
  Company Number: US-PFIZER INC-2017026828

PATIENT
  Age: 73 Year
  Sex: Female

DRUGS (5)
  1. INLYTA [Suspect]
     Active Substance: AXITINIB
     Dosage: 3 MG, 2X/DAY (1 MG/3 TABLET BY MOUTH TWICE A DAY)
     Route: 048
  2. INLYTA [Suspect]
     Active Substance: AXITINIB
     Dosage: 3 MG, DAILY
     Route: 048
  3. INLYTA [Suspect]
     Active Substance: AXITINIB
     Indication: RENAL CANCER METASTATIC
     Dosage: 5 MG, 2X/DAY
     Route: 048
     Dates: start: 201612
  4. INLYTA [Suspect]
     Active Substance: AXITINIB
     Dosage: 3 MG, DAILY
     Route: 048
  5. INLYTA [Suspect]
     Active Substance: AXITINIB
     Dosage: 3 MG, 2X/DAY (1 MG/3 TABLET BY MOUTH TWICE A DAY)
     Route: 048
     Dates: start: 201612

REACTIONS (10)
  - Dark circles under eyes [Recovered/Resolved]
  - Hypertension [Recovering/Resolving]
  - Hyperkeratosis [Recovered/Resolved]
  - Erythema [Recovered/Resolved]
  - Drug dose omission [Recovered/Resolved]
  - Hepatic enzyme increased [Unknown]
  - Throat tightness [Unknown]
  - Liver disorder [Unknown]
  - Skin disorder [Unknown]
  - Alopecia [Recovering/Resolving]
